FAERS Safety Report 7718939-8 (Version None)
Quarter: 2011Q3

REPORT INFORMATION
  Report Type: 
  Country: None (occurrence: None)
  Receive Date: 20110830
  Receipt Date: 20110819
  Transmission Date: 20111222
  Serious: Yes (Other)
  Sender: FDA-Public Use
  Company Number: US-GLAXOSMITHKLINE-A0888752A

PATIENT
  Age: 33 Year
  Sex: Female

DRUGS (1)
  1. AVANDIA [Suspect]
     Indication: DIABETES MELLITUS
     Route: 048
     Dates: start: 20040601

REACTIONS (5)
  - SUPRAVENTRICULAR TACHYCARDIA [None]
  - HEART RATE IRREGULAR [None]
  - CARDIOMEGALY [None]
  - PALPITATIONS [None]
  - CARDIAC FAILURE CONGESTIVE [None]
